FAERS Safety Report 4988368-9 (Version None)
Quarter: 2006Q2

REPORT INFORMATION
  Report Type: 
  Country: None (occurrence: None)
  Receive Date: 20060502
  Receipt Date: 20060421
  Transmission Date: 20061013
  Serious: Yes (Hospitalization)
  Sender: FDA-Public Use
  Company Number: US-JNJFOC-20060405172

PATIENT
  Sex: Female
  Weight: 93.9 kg

DRUGS (11)
  1. FENTANYL TRANSDERMAL SYSTEM [Suspect]
     Route: 062
  2. ZOLOFT [Concomitant]
     Route: 048
  3. ZOCOR [Concomitant]
     Route: 048
  4. SEROQUEL [Concomitant]
     Route: 048
  5. ASPIRIN [Concomitant]
     Route: 048
  6. LASIX [Concomitant]
     Route: 048
  7. FOSAMAX [Concomitant]
     Route: 048
  8. TRAZODONE HCL [Concomitant]
     Route: 048
  9. NEURONTIN [Concomitant]
     Route: 048
  10. HYDROCODONE [Concomitant]
     Route: 048
  11. NEXIUM [Concomitant]
     Route: 048

REACTIONS (3)
  - PHARMACEUTICAL PRODUCT COMPLAINT [None]
  - SKIN INFECTION [None]
  - THERAPEUTIC RESPONSE DECREASED [None]
